FAERS Safety Report 7428782-5 (Version None)
Quarter: 2011Q2

REPORT INFORMATION
  Report Type: 
  Country: None (occurrence: None)
  Receive Date: 20110413
  Receipt Date: 20110402
  Transmission Date: 20111010
  Serious: Yes (Other)
  Sender: FDA-Public Use
  Company Number: JP-2011-10109

PATIENT
  Age: 80 Year
  Sex: Male

DRUGS (3)
  1. PLETAL [Suspect]
     Dosage: ORAL
     Route: 048
     Dates: start: 20100701, end: 20110107
  2. ASPIRIN [Concomitant]
  3. TAKEPRONE (LANSOPROAZOLE) [Concomitant]

REACTIONS (1)
  - HAEMARTHROSIS [None]
